FAERS Safety Report 5853590 (Version 7)
Quarter: 2020Q3

REPORT INFORMATION
  Report Type: Report from Study
  Country: FR (occurrence: FR)
  Receive Date: 20050808
  Receipt Date: 20060417
  Transmission Date: 20201105
  Serious: Yes (Death, Life-Threatening, Hospitalization, Other)
  Sender: FDA-Public Use
  Company Number: FR-JNJFOC-20050705945

PATIENT
  Age: 76 Year
  Sex: Female
  Weight: 58 kg

DRUGS (10)
  1. CACIT [CALCIUM CARBONATE] [Concomitant]
     Active Substance: CALCIUM CARBONATE
  2. ACTONEL [Concomitant]
     Active Substance: RISEDRONATE SODIUM
     Indication: OSTEOPOROSIS
     Route: 048
  3. REMICADE [Suspect]
     Active Substance: INFLIXIMAB
     Route: 042
  4. NOVATREX (METHOTREXATE) [Concomitant]
     Active Substance: METHOTREXATE SODIUM
     Route: 048
  5. METHOTREXATE. [Concomitant]
     Active Substance: METHOTREXATE
     Indication: RHEUMATOID ARTHRITIS
     Route: 048
  6. VITAMIN D2 [Concomitant]
     Active Substance: ERGOCALCIFEROL
  7. FOLIC ACID. [Concomitant]
     Active Substance: FOLIC ACID
     Indication: RHEUMATOID ARTHRITIS
     Route: 048
  8. REMICADE [Suspect]
     Active Substance: INFLIXIMAB
     Indication: RHEUMATOID ARTHRITIS
     Route: 042
  9. SULFASALAZINE. [Concomitant]
     Active Substance: SULFASALAZINE
  10. CACIT [CALCIUM CARBONATE] [Concomitant]
     Active Substance: CALCIUM CARBONATE
     Indication: OSTEOPOROSIS

REACTIONS (5)
  - Anaemia [None]
  - Spinal compression fracture [None]
  - B-cell lymphoma [Fatal]
  - Spinal fracture [Unknown]
  - Spinal cord infection [None]

NARRATIVE: CASE EVENT DATE: 20050812
